FAERS Safety Report 13373285 (Version 1)
Quarter: 2017Q1

REPORT INFORMATION
  Report Type: Report from Study
  Country: FR (occurrence: FR)
  Receive Date: 20170327
  Receipt Date: 20170327
  Transmission Date: 20170429
  Serious: Yes (Death, Life-Threatening, Hospitalization)
  Sender: FDA-Public Use
  Company Number: FR-PFIZER INC-2003144596FR

PATIENT
  Age: 5 Year
  Sex: Male
  Weight: 22 kg

DRUGS (5)
  1. LEVOTHYROX [Concomitant]
     Active Substance: LEVOTHYROXINE
     Dosage: UNK
     Dates: start: 19980704, end: 20020531
  2. GENOTROPIN [Suspect]
     Active Substance: SOMATROPIN
     Indication: HYPOPITUITARISM
     Dosage: 15 IU, UNK
     Route: 058
     Dates: start: 20010215, end: 20010603
  3. MINRIN [Concomitant]
     Active Substance: DESMOPRESSIN ACETATE
     Dosage: UNK
     Dates: start: 19980704, end: 20020531
  4. HYDROCORTISONE. [Concomitant]
     Active Substance: HYDROCORTISONE
     Dosage: UNK
     Dates: start: 19980704, end: 20020531
  5. DEPAKINE /00228501/ [Concomitant]
     Active Substance: VALPROIC ACID
     Dosage: UNK
     Dates: start: 20010215

REACTIONS (1)
  - Neuroblastoma [Fatal]

NARRATIVE: CASE EVENT DATE: 20010520
